FAERS Safety Report 8886144 (Version 30)
Quarter: 2015Q3

REPORT INFORMATION
  Report Type: Report from Study
  Country: CA (occurrence: CA)
  Receive Date: 20121105
  Receipt Date: 20150824
  Transmission Date: 20151125
  Serious: Yes (Hospitalization, Other)
  Sender: FDA-Public Use
  Company Number: CA-ROCHE-1144675

PATIENT
  Age: 49 Year
  Sex: Female
  Weight: 75 kg

DRUGS (34)
  1. ACTEMRA [Suspect]
     Active Substance: TOCILIZUMAB
     Route: 042
     Dates: start: 20121128
  2. PREDNISONE. [Concomitant]
     Active Substance: PREDNISONE
     Route: 065
     Dates: start: 20150410
  3. APO-HYDROXYQUINE [Concomitant]
  4. CLONAZEPAM. [Concomitant]
     Active Substance: CLONAZEPAM
  5. METHOTREXATE [Concomitant]
     Active Substance: METHOTREXATE
  6. ACTEMRA [Suspect]
     Active Substance: TOCILIZUMAB
     Route: 042
     Dates: start: 20150407
  7. ACTEMRA [Suspect]
     Active Substance: TOCILIZUMAB
     Route: 042
     Dates: start: 20150820
  8. RANITIDINE [Concomitant]
     Active Substance: RANITIDINE\RANITIDINE HYDROCHLORIDE
  9. NASONEX [Concomitant]
     Active Substance: MOMETASONE FUROATE
  10. DOMPERIDONE [Concomitant]
     Active Substance: DOMPERIDONE
  11. METHOTREXATE [Concomitant]
     Active Substance: METHOTREXATE
  12. ESTRACE [Concomitant]
     Active Substance: ESTRADIOL
  13. ACTEMRA [Suspect]
     Active Substance: TOCILIZUMAB
     Route: 042
     Dates: start: 20120830
  14. GLUTAMINE [Concomitant]
     Active Substance: GLUTAMINE
  15. ACTEMRA [Suspect]
     Active Substance: TOCILIZUMAB
     Route: 042
     Dates: start: 20120802
  16. DOCUSATE SODIUM. [Concomitant]
     Active Substance: DOCUSATE SODIUM
  17. APO-MEDROXY [Concomitant]
  18. ACTEMRA [Suspect]
     Active Substance: TOCILIZUMAB
     Dosage: SINGLE DOSE
     Route: 042
     Dates: start: 20141014
  19. ACTEMRA [Suspect]
     Active Substance: TOCILIZUMAB
     Indication: RHEUMATOID ARTHRITIS
     Route: 058
     Dates: start: 20141119, end: 20150402
  20. PANTOLOC [Concomitant]
     Active Substance: PANTOPRAZOLE SODIUM
  21. DOMPERIDONE [Concomitant]
     Active Substance: DOMPERIDONE
  22. ACTEMRA [Suspect]
     Active Substance: TOCILIZUMAB
     Indication: RHEUMATOID ARTHRITIS
     Route: 042
     Dates: start: 20120607
  23. ACTEMRA [Suspect]
     Active Substance: TOCILIZUMAB
     Route: 042
     Dates: start: 20130730
  24. ACTEMRA [Suspect]
     Active Substance: TOCILIZUMAB
     Route: 042
     Dates: start: 20150528
  25. ACTEMRA [Suspect]
     Active Substance: TOCILIZUMAB
     Route: 042
     Dates: start: 20150625
  26. PREDNISONE. [Concomitant]
     Active Substance: PREDNISONE
     Indication: PRODUCT USED FOR UNKNOWN INDICATION
     Route: 065
  27. LYRICA [Concomitant]
     Active Substance: PREGABALIN
  28. EURO-FOLIC [Concomitant]
  29. ACTEMRA [Suspect]
     Active Substance: TOCILIZUMAB
     Route: 042
     Dates: start: 20130422
  30. ACTEMRA [Suspect]
     Active Substance: TOCILIZUMAB
     Route: 042
     Dates: start: 20130827
  31. ACTEMRA [Suspect]
     Active Substance: TOCILIZUMAB
     Route: 042
     Dates: start: 20140703
  32. MEDROXY [Concomitant]
     Active Substance: MEDROXYPROGESTERONE ACETATE
  33. NOVAMILOR [Concomitant]
  34. CORTISONE [Concomitant]
     Active Substance: CORTISONE\HYDROCORTISONE
     Route: 065
     Dates: start: 20140501

REACTIONS (35)
  - Cough [Unknown]
  - Hypoaesthesia [Unknown]
  - Herpes zoster [Recovered/Resolved]
  - Injection site extravasation [Unknown]
  - Arthralgia [Not Recovered/Not Resolved]
  - Seasonal allergy [Recovering/Resolving]
  - Femur fracture [Not Recovered/Not Resolved]
  - Mammogram abnormal [Unknown]
  - Pain in extremity [Not Recovered/Not Resolved]
  - Musculoskeletal pain [Not Recovered/Not Resolved]
  - Headache [Unknown]
  - Pruritus [Recovered/Resolved]
  - Bronchitis [Recovered/Resolved]
  - Vascular rupture [Unknown]
  - Vulvovaginal dryness [Recovered/Resolved]
  - Headache [Recovered/Resolved]
  - Wheezing [Recovering/Resolving]
  - Menopause [Unknown]
  - Weight decreased [Unknown]
  - Weight increased [Unknown]
  - Cough [Not Recovered/Not Resolved]
  - Salivary hypersecretion [Unknown]
  - Blood pressure increased [Not Recovered/Not Resolved]
  - Arthralgia [Not Recovered/Not Resolved]
  - Drug ineffective [Unknown]
  - Nasal congestion [Unknown]
  - Vaginal infection [Not Recovered/Not Resolved]
  - Vulvovaginal pruritus [Unknown]
  - Musculoskeletal stiffness [Not Recovered/Not Resolved]
  - Erythema [Recovered/Resolved]
  - Rheumatoid arthritis [Not Recovered/Not Resolved]
  - Blood pressure increased [Unknown]
  - Blood pressure increased [Unknown]
  - Oropharyngeal pain [Recovering/Resolving]
  - Acne [Not Recovered/Not Resolved]

NARRATIVE: CASE EVENT DATE: 20121017
